FAERS Safety Report 26054146 (Version 2)
Quarter: 2025Q4

REPORT INFORMATION
  Report Type: Spontaneous
  Country: US (occurrence: US)
  Receive Date: 20251117
  Receipt Date: 20251121
  Transmission Date: 20260117
  Serious: No
  Sender: BAYER HEALTHCARE LLC
  Company Number: US-BAYER-2025A151366

PATIENT
  Age: 79 Year
  Sex: Female

DRUGS (6)
  1. ASTEPRO [Suspect]
     Active Substance: AZELASTINE HYDROCHLORIDE
     Indication: Asthma
     Dosage: UNK
     Route: 045
     Dates: start: 20251112, end: 20251113
  2. ASTEPRO ALLERGY [Suspect]
     Active Substance: AZELASTINE HYDROCHLORIDE
     Indication: Asthma
     Dosage: UNK
     Route: 045
  3. FLUTICASONE [Concomitant]
     Active Substance: FLUTICASONE
  4. CETIRIZINE [Concomitant]
     Active Substance: CETIRIZINE HYDROCHLORIDE
  5. MONTELUKAST [Concomitant]
     Active Substance: MONTELUKAST
  6. AZELASTINE [Concomitant]
     Active Substance: AZELASTINE

REACTIONS (5)
  - Expired product administered [None]
  - Product prescribing issue [None]
  - Product use in unapproved indication [None]
  - Insomnia [Unknown]
  - Drug ineffective for unapproved indication [Unknown]

NARRATIVE: CASE EVENT DATE: 20251112
